FAERS Safety Report 6840577-X (Version None)
Quarter: 2010Q3

REPORT INFORMATION
  Report Type: 
  Country: None (occurrence: None)
  Receive Date: 20100714
  Receipt Date: 20100712
  Transmission Date: 20110219
  Serious: Yes (Life-Threatening)
  Sender: FDA-Public Use
  Company Number: B0643309A

PATIENT
  Age: 65 Year
  Sex: Female
  Weight: 52 kg

DRUGS (9)
  1. AMOXICILLIN [Suspect]
     Indication: URINARY TRACT INFECTION
     Route: 048
     Dates: start: 20100228, end: 20100228
  2. AMLODIPINE [Concomitant]
     Indication: HYPERTENSION
     Dosage: 10MG PER DAY
     Route: 048
     Dates: start: 20040101
  3. ATENOLOL [Concomitant]
     Dosage: 100MG PER DAY
     Route: 048
     Dates: start: 20040101
  4. LOSARTAN POSTASSIUM [Concomitant]
     Route: 048
     Dates: start: 20090101
  5. PRAVASTATIN [Concomitant]
     Dosage: 20MG PER DAY
     Route: 048
     Dates: start: 20090101
  6. ASPIRIN [Concomitant]
     Dosage: 75MG PER DAY
     Route: 065
  7. OMEPRAZOLE [Concomitant]
     Dosage: 10MG PER DAY
     Route: 065
  8. LOPERAMIDE [Concomitant]
  9. ACETAMINOPHEN AND CODEINE PHOSPHATE [Concomitant]

REACTIONS (11)
  - ANAPHYLACTIC REACTION [None]
  - APHASIA [None]
  - CIRCULATORY COLLAPSE [None]
  - DYSPNOEA [None]
  - HEART RATE DECREASED [None]
  - HEART RATE IRREGULAR [None]
  - HYPERHIDROSIS [None]
  - NAUSEA [None]
  - OEDEMA MOUTH [None]
  - PARAESTHESIA ORAL [None]
  - SWOLLEN TONGUE [None]
